FAERS Safety Report 9797127 (Version 2)
Quarter: 2014Q1

REPORT INFORMATION
  Report Type: Report from Study
  Country: US (occurrence: US)
  Receive Date: 20140106
  Receipt Date: 20140121
  Transmission Date: 20141002
  Serious: No
  Sender: FDA-Public Use
  Company Number: PHEH2013US026652

PATIENT
  Sex: Male
  Weight: 82.86 kg

DRUGS (16)
  1. TASIGNA [Suspect]
     Indication: CHRONIC MYELOID LEUKAEMIA
     Dosage: 150 MG, BID
     Route: 048
     Dates: start: 20130401
  2. KLONOPIN [Concomitant]
     Dosage: UNK UKN, UNK
  3. NITRO-DUR [Concomitant]
     Dosage: UNK UKN, UNK
  4. TAMSULOSIN HCL [Concomitant]
     Dosage: UNK UKN, UNK
  5. LISINOPRIL [Concomitant]
     Dosage: UNK UKN, UNK
  6. DILT CD [Concomitant]
     Dosage: UNK UKN, UNK
  7. FUROSEMIDE [Concomitant]
  8. LIPITOR [Concomitant]
  9. TERAZOSIN [Concomitant]
  10. AMIODARONE HCL [Concomitant]
  11. CETIRIZINE HYDROCHLORIDE [Concomitant]
  12. METOPROLOL TARTRATE [Concomitant]
  13. TYLENOL [Concomitant]
     Dosage: PER 8 HOUR
  14. POTASSIUM CL [Concomitant]
     Dosage: UNK UKN, UNK
  15. MIRALAX [Concomitant]
     Dosage: UNK UKN, UNK
  16. PLAVIX [Concomitant]
     Dosage: UNK UKN, UNK

REACTIONS (2)
  - Blood pressure increased [Unknown]
  - Constipation [Unknown]
